FAERS Safety Report 5049727-1 (Version None)
Quarter: 2006Q3

REPORT INFORMATION
  Report Type: 
  Country: None (occurrence: None)
  Receive Date: 20060707
  Receipt Date: 20060627
  Transmission Date: 20061208
  Serious: Yes (Other)
  Sender: FDA-Public Use
  Company Number: 2006BI005086

PATIENT
  Age: 48 Year
  Sex: Male
  Weight: 83.0083 kg

DRUGS (3)
  1. AVONEX [Suspect]
     Indication: MULTIPLE SCLEROSIS
     Dosage: 30 UG; QW; IM
     Route: 030
     Dates: start: 20000101, end: 20030101
  2. AVONEX [Suspect]
     Indication: MULTIPLE SCLEROSIS
     Dosage: 30 UG; QW; IM
     Route: 030
     Dates: start: 20030101
  3. HYDROCHLOROTHIAZIDE [Concomitant]

REACTIONS (5)
  - BILE DUCT OBSTRUCTION [None]
  - BLOOD POTASSIUM DECREASED [None]
  - PANCREATIC DUCT OBSTRUCTION [None]
  - PANCREATIC NEOPLASM [None]
  - PANCREATITIS [None]
